FAERS Safety Report 7417994-2 (Version None)
Quarter: 2011Q2

REPORT INFORMATION
  Report Type: 
  Country: None (occurrence: None)
  Receive Date: 20110415
  Receipt Date: 20110407
  Transmission Date: 20111010
  Serious: Yes (Life-Threatening, Hospitalization, Other)
  Sender: FDA-Public Use
  Company Number: DE-TEVA-275436GER

PATIENT
  Age: 78 Year
  Sex: Female
  Weight: 64 kg

DRUGS (3)
  1. FUROSEMID, 40 MG, TABL, NN [Suspect]
     Dosage: 40 MILLIGRAM;
     Route: 048
     Dates: start: 20101228, end: 20110115
  2. LISIPLUS AL, 20/12,5 MG, TABL, ALIUD PHARMA [Suspect]
     Dosage: 1 DOSAGE FORMS;
     Route: 048
     Dates: start: 20101101, end: 20110115
  3. TORASEMID, 10 MG, TABL, NN [Suspect]
     Dosage: 20 MILLIGRAM;
     Route: 048
     Dates: start: 20100705, end: 20110115

REACTIONS (1)
  - RENAL FAILURE ACUTE [None]
